FAERS Safety Report 19018602 (Version 3)
Quarter: 2021Q1

REPORT INFORMATION
  Report Type: Spontaneous
  Country: US (occurrence: US)
  Receive Date: 20210317
  Receipt Date: 20210329
  Transmission Date: 20210420
  Serious: Yes (Other)
  Sender: FDA-Public Use
  Company Number: US-CELGENEUS-USA-20210303248

PATIENT
  Sex: Female

DRUGS (3)
  1. REVLIMID [Suspect]
     Active Substance: LENALIDOMIDE
     Dosage: 10 MILLIGRAM
     Route: 048
     Dates: start: 20160512
  2. REVLIMID [Suspect]
     Active Substance: LENALIDOMIDE
     Indication: PLASMA CELL MYELOMA
     Dosage: 15 MILLIGRAM
     Route: 048
     Dates: start: 201509
  3. REVLIMID [Suspect]
     Active Substance: LENALIDOMIDE
     Indication: VITAMIN B COMPLEX DEFICIENCY
     Dosage: 10 MILLIGRAM
     Route: 048
     Dates: start: 201512

REACTIONS (1)
  - Breast cancer metastatic [Unknown]
